FAERS Safety Report 8578027-8 (Version None)
Quarter: 2012Q3

REPORT INFORMATION
  Report Type: 
  Country: None (occurrence: None)
  Receive Date: 20120726
  Receipt Date: 20120711
  Transmission Date: 20120928
  Serious: Yes (Other)
  Sender: FDA-Public Use
  Company Number: TPA2012A03144

PATIENT
  Age: 68 Year
  Sex: Female

DRUGS (5)
  1. MABTHERA (RITUXIMAB) [Concomitant]
  2. VERAPAMIL (VERAPAMIL) TAREG (VALSARTAN) [Concomitant]
  3. CALCIUM CARBONATE [Concomitant]
  4. ADENURIC (FEBUXOSTAT) [Suspect]
     Indication: HYPERURICAEMIA
     Dosage: 80 MG (80 MG, 1 IN 1 D) ORAL
     Route: 048
     Dates: start: 20100315
  5. WARFARIN SODIUM [Concomitant]

REACTIONS (9)
  - DIZZINESS [None]
  - GOUTY ARTHRITIS [None]
  - FEELING DRUNK [None]
  - ARTHRALGIA [None]
  - APHTHOUS STOMATITIS [None]
  - HYPERHIDROSIS [None]
  - DYSPNOEA [None]
  - FATIGUE [None]
  - PLATELET COUNT DECREASED [None]
